FAERS Safety Report 11050074 (Version 5)
Quarter: 2015Q3

REPORT INFORMATION
  Report Type: Spontaneous
  Country: US (occurrence: US)
  Receive Date: 20150420
  Receipt Date: 20150827
  Transmission Date: 20151125
  Serious: No
  Sender: FDA-Public Use
  Company Number: US-009507513-1504USA017071

PATIENT
  Age: 26 Year
  Sex: Female
  Weight: 83.9 kg

DRUGS (1)
  1. NEXPLANON [Suspect]
     Active Substance: ETONOGESTREL
     Indication: CONTRACEPTION
     Dosage: 1 ROD/THREE YEARS
     Route: 059
     Dates: start: 20150314, end: 20150414

REACTIONS (4)
  - Wound infection staphylococcal [Recovered/Resolved]
  - Purulence [Unknown]
  - Device expulsion [Recovered/Resolved]
  - Implant site cellulitis [Unknown]

NARRATIVE: CASE EVENT DATE: 20150316
